FAERS Safety Report 4807305-0 (Version None)
Quarter: 2005Q4

REPORT INFORMATION
  Report Type: 
  Country: None (occurrence: None)
  Receive Date: 20051020
  Receipt Date: 20051005
  Transmission Date: 20060501
  Serious: Yes (Hospitalization)
  Sender: FDA-Public Use
  Company Number: 2005-0008504

PATIENT
  Age: 49 Year
  Sex: Male
  Weight: 60 kg

DRUGS (3)
  1. VIREAD [Suspect]
     Indication: HIV INFECTION
     Dosage: ORAL
     Route: 048
     Dates: start: 20040206
  2. EPIVIR [Suspect]
     Dosage: ORAL
     Route: 048
     Dates: start: 19980518
  3. VIRAMUNE [Suspect]
     Dosage: ORAL
     Route: 048
     Dates: start: 20020124

REACTIONS (1)
  - OSTEONECROSIS [None]
